FAERS Safety Report 9751606 (Version 1)
Quarter: 2013Q4

REPORT INFORMATION
  Report Type: Report from Study
  Country: CN (occurrence: CN)
  Receive Date: 20131212
  Receipt Date: 20131212
  Transmission Date: 20140711
  Serious: Yes (Hospitalization, Other)
  Sender: FDA-Public Use
  Company Number: CN-GILEAD-2013-0089872

PATIENT
  Age: 27 Year
  Sex: Male

DRUGS (6)
  1. TENOFOVIR DISOPROXIL FUMARATE [Suspect]
     Indication: HIV INFECTION
     Route: 065
  2. TENOFOVIR DISOPROXIL FUMARATE [Suspect]
     Indication: HEPATITIS B
  3. EFAVIRENZ [Suspect]
     Indication: HIV INFECTION
     Route: 065
  4. EFAVIRENZ [Suspect]
     Indication: HEPATITIS B
  5. LAMIVUDINE [Suspect]
     Indication: HIV INFECTION
     Route: 065
  6. LAMIVUDINE [Suspect]
     Indication: HEPATITIS B

REACTIONS (5)
  - Nervous system disorder [Recovered/Resolved]
  - Mental status changes [Recovered/Resolved]
  - Hallucination [Recovered/Resolved]
  - Alanine aminotransferase increased [Recovered/Resolved]
  - Aspartate aminotransferase increased [Recovered/Resolved]
